FAERS Safety Report 7642732-8 (Version None)
Quarter: 2011Q3

REPORT INFORMATION
  Report Type: 
  Country: None (occurrence: None)
  Receive Date: 20110728
  Receipt Date: 20110725
  Transmission Date: 20111222
  Serious: No
  Sender: FDA-Public Use
  Company Number: US-PFIZER INC-2011169704

PATIENT
  Age: 48 Year
  Sex: Male

DRUGS (3)
  1. LIPITOR [Suspect]
     Dosage: DAILY
  2. SITAGLIPTIN AND METFORMIN HYDROCHLORIDE [Suspect]
     Dosage: DAILY
  3. LISINOPRIL [Suspect]
     Dosage: DAILY

REACTIONS (2)
  - SLUGGISHNESS [None]
  - MALAISE [None]
